FAERS Safety Report 9743212 (Version 3)
Quarter: 2014Q2

REPORT INFORMATION
  Report Type: Report from Study
  Country: US (occurrence: US)
  Receive Date: 20131210
  Receipt Date: 20140417
  Transmission Date: 20141212
  Serious: Yes (Hospitalization)
  Sender: FDA-Public Use
  Company Number: US-PFIZER INC-2013348039

PATIENT
  Age: 51 Year
  Sex: Female
  Weight: 50.3 kg

DRUGS (17)
  1. CRIZOTINIB [Suspect]
     Indication: NON-SMALL CELL LUNG CANCER
     Dosage: 250 MG, 2X/DAY
     Route: 048
     Dates: start: 20131118
  2. PLAQUENIL [Suspect]
     Indication: SYSTEMIC LUPUS ERYTHEMATOSUS
     Dosage: 200 MG, BID
     Route: 048
     Dates: start: 2008
  3. VALIUM [Concomitant]
     Indication: INSOMNIA
     Dosage: UNK
  4. SYNTHROID [Concomitant]
     Indication: HYPOTHYROIDISM
     Dosage: UNK
  5. TRAZODONE [Concomitant]
     Indication: ANXIETY
     Dosage: UNK
  6. DOCUSATE [Concomitant]
     Indication: CONSTIPATION
     Dosage: UNK
  7. VENTOLIN [Concomitant]
     Indication: ASTHMA
     Dosage: UNK
  8. WELLBUTRIN [Concomitant]
     Indication: TOBACCO USER
     Dosage: UNK
  9. REMERON [Concomitant]
     Indication: DEPRESSION
     Dosage: UNK
  10. PERCOCET [Concomitant]
     Indication: PAIN
     Dosage: UNK
  11. IPRATROPIUM-ALBUTEROL [Concomitant]
     Indication: ASTHMA
     Dosage: UNK
  12. TACROLIMUS [Concomitant]
     Dosage: UNK
  13. NEURONTIN [Concomitant]
     Indication: FIBROMYALGIA
     Dosage: UNK
  14. PREDNISONE [Concomitant]
     Indication: SYSTEMIC LUPUS ERYTHEMATOSUS
     Dosage: UNK
  15. VOLTAREN [Concomitant]
     Indication: OSTEONECROSIS
     Dosage: UNK
  16. AZATHIOPRINE [Concomitant]
     Indication: SYSTEMIC LUPUS ERYTHEMATOSUS
     Dosage: UNK
  17. FLEXERIL [Concomitant]
     Indication: PAIN
     Dosage: UNK

REACTIONS (1)
  - Febrile neutropenia [Recovered/Resolved]
